FAERS Safety Report 6377330-X (Version None)
Quarter: 2009Q3

REPORT INFORMATION
  Report Type: 
  Country: None (occurrence: None)
  Receive Date: 20090923
  Receipt Date: 20090923
  Transmission Date: 20100115
  Serious: Yes (Life-Threatening, Hospitalization)
  Sender: FDA-Public Use
  Company Number: None

PATIENT
  Sex: Female
  Weight: 52.5 kg

DRUGS (9)
  1. IFOSFAMIDE [Suspect]
     Indication: DIFFUSE LARGE B-CELL LYMPHOMA
     Dosage: 3 825MG IV Q 12H
     Route: 042
     Dates: start: 20090701
  2. ALLOPURINOL [Concomitant]
  3. INSULIN ASPART [Concomitant]
  4. LANSOPRAZOLE [Concomitant]
  5. LORAZEPAM [Concomitant]
  6. PYRIDOXINE [Concomitant]
  7. DEXAMETHASONE 4MG TAB [Concomitant]
  8. ETOPOSIDE [Concomitant]
  9. ONDANSETRON [Concomitant]

REACTIONS (2)
  - DEPRESSED LEVEL OF CONSCIOUSNESS [None]
  - MENTAL STATUS CHANGES [None]
